FAERS Safety Report 9366457 (Version 1)
Quarter: 2013Q2

REPORT INFORMATION
  Report Type: Spontaneous
  Country: US (occurrence: US)
  Receive Date: 20130625
  Receipt Date: 20130625
  Transmission Date: 20140414
  Serious: No
  Sender: FDA-Public Use
  Company Number: US-BAYER-2013-070149

PATIENT
  Age: 84 Year
  Sex: Male

DRUGS (6)
  1. LEVITRA [Suspect]
     Indication: ERECTILE DYSFUNCTION
     Dosage: 10 MG TWICE A WEEK
     Route: 048
     Dates: start: 201304
  2. LEVITRA [Suspect]
     Indication: ERECTILE DYSFUNCTION
  3. ACCUPRIL [Concomitant]
     Indication: HYPERTENSION
     Dosage: 20 MG, BID
  4. LOPRESSOR [Concomitant]
     Indication: HYPERTENSION
     Dosage: 10 MG, BID
  5. PREVACID [Concomitant]
     Indication: ULCER
  6. VALIUM [Concomitant]
     Indication: MUSCLE RELAXANT THERAPY

REACTIONS (2)
  - Drug ineffective [None]
  - Drug ineffective [None]
